FAERS Safety Report 18766827 (Version 2)
Quarter: 2023Q2

REPORT INFORMATION
  Report Type: Report from Study
  Country: DE (occurrence: DE)
  Receive Date: 20210121
  Receipt Date: 20230617
  Transmission Date: 20230722
  Serious: Yes (Death, Hospitalization, Other)
  Sender: FDA-Public Use
  Company Number: DE-AUROBINDO-AUR-APL-2021-002701

PATIENT
  Age: 55 Year
  Sex: Male

DRUGS (2)
  1. MELPHALAN [Suspect]
     Active Substance: MELPHALAN
     Indication: Uveal melanoma
     Dosage: UNK, HIGH DOSE
     Route: 065
  2. HEPARIN [Concomitant]
     Active Substance: HEPARIN SODIUM
     Indication: Product used for unknown indication
     Dosage: UNK
     Route: 065

REACTIONS (6)
  - Septic shock [Fatal]
  - Multiple organ dysfunction syndrome [Fatal]
  - Pancytopenia [Unknown]
  - Peritonitis bacterial [Unknown]
  - Product use in unapproved indication [Unknown]
  - Product use issue [Unknown]
